FAERS Safety Report 4610127-7 (Version None)
Quarter: 2005Q1

REPORT INFORMATION
  Report Type: 
  Country: None (occurrence: None)
  Receive Date: 20050316
  Receipt Date: 20040820
  Transmission Date: 20050727
  Serious: Yes (Death, Hospitalization)
  Sender: FDA-Public Use
  Company Number: US-BRISTOL-MYERS SQUIBB COMPANY-12678314

PATIENT
  Age: 61 Year
  Sex: Male
  Weight: 70 kg

DRUGS (8)
  1. CETUXIMAB [Suspect]
     Indication: COLORECTAL CANCER METASTATIC
     Dosage: INITIAL DOSE 28-JUN-2004
     Route: 042
     Dates: start: 20040817, end: 20040817
  2. OXALIPLATIN [Suspect]
     Indication: COLORECTAL CANCER METASTATIC
     Dosage: INITIAL DOSE 28-JUN-2004
     Route: 042
     Dates: start: 20040817, end: 20040817
  3. FLUOROURACIL [Suspect]
     Indication: COLORECTAL CANCER METASTATIC
     Dosage: 28-JUN-2004 TO 17-AUG-2004 BOLUS 688MG, FOLLOWED BY CONTINUOUS INFUSION (46HOURS)
     Route: 042
     Dates: start: 20040817, end: 20040819
  4. LEUCOVORIN [Suspect]
     Indication: COLORECTAL CANCER METASTATIC
     Dosage: INITIAL TX DATE: 28-JUN-04.
     Route: 042
     Dates: start: 20040817, end: 20040817
  5. METFORMIN HCL [Concomitant]
     Indication: DIABETES MELLITUS
  6. GLIPIZIDE [Concomitant]
     Indication: DIABETES MELLITUS
     Route: 048
  7. ACCUPRIL [Concomitant]
     Indication: HYPERTENSION
     Route: 048
  8. COUMADIN [Concomitant]
     Indication: PROPHYLAXIS
     Route: 048
     Dates: start: 20040628

REACTIONS (16)
  - ACUTE MYOCARDIAL INFARCTION [None]
  - AORTIC DISSECTION [None]
  - BACK PAIN [None]
  - BLOOD PRESSURE DECREASED [None]
  - CENTRAL LINE INFECTION [None]
  - COLORECTAL CANCER [None]
  - CYANOSIS [None]
  - EXTRADURAL ABSCESS [None]
  - HEART RATE DECREASED [None]
  - HYPOAESTHESIA [None]
  - INADEQUATE ANALGESIA [None]
  - MALIGNANT NEOPLASM PROGRESSION [None]
  - MENTAL STATUS CHANGES [None]
  - OXYGEN SATURATION DECREASED [None]
  - SEDATION [None]
  - SPINAL CORD COMPRESSION [None]
